FAERS Safety Report 18174027 (Version 1)
Quarter: 2020Q3

REPORT INFORMATION
  Report Type: Spontaneous
  Country: US (occurrence: US)
  Receive Date: 20200819
  Receipt Date: 20200819
  Transmission Date: 20201103
  Serious: Yes (Death)
  Sender: FDA-Public Use
  Company Number: None

PATIENT
  Sex: Male

DRUGS (11)
  1. VELTASSA [Suspect]
     Active Substance: PATIROMER
     Indication: HYPERKALAEMIA
     Route: 048
     Dates: start: 20190212
  2. LACTULOSE. [Concomitant]
     Active Substance: LACTULOSE
  3. MORPHINE [Concomitant]
     Active Substance: MORPHINE
  4. LORAZEPAM. [Concomitant]
     Active Substance: LORAZEPAM
  5. HALOPERIDOL. [Concomitant]
     Active Substance: HALOPERIDOL
  6. HYOSCYAMINE. [Concomitant]
     Active Substance: HYOSCYAMINE
  7. BISACODYL. [Concomitant]
     Active Substance: BISACODYL
  8. ONDANSETRON [Concomitant]
     Active Substance: ONDANSETRON
  9. OXYCODONE [Concomitant]
     Active Substance: OXYCODONE
  10. SENNA [Concomitant]
     Active Substance: SENNA LEAF\SENNOSIDES\SENNOSIDES A AND B
  11. ACETAMINOPHEN. [Concomitant]
     Active Substance: ACETAMINOPHEN

REACTIONS (1)
  - Death [None]
